FAERS Safety Report 5147008-9 (Version None)
Quarter: 2006Q4

REPORT INFORMATION
  Report Type: 
  Country: None (occurrence: None)
  Receive Date: 20061109
  Receipt Date: 20061102
  Transmission Date: 20070319
  Serious: Yes (Other)
  Sender: FDA-Public Use
  Company Number: US-JNJFOC-20061003104

PATIENT
  Sex: Female
  Weight: 50.35 kg

DRUGS (14)
  1. ULTRAM SR [Suspect]
     Indication: PAIN MANAGEMENT
  2. ULTRAM SR [Suspect]
     Indication: OSTEOARTHRITIS
  3. LYRICA [Interacting]
     Indication: COMPRESSION FRACTURE
  4. LYRICA [Interacting]
     Indication: CONVULSION
  5. RISPERDAL [Concomitant]
  6. CYMBALTA [Concomitant]
  7. ALLEGRA [Concomitant]
  8. PLENDIL [Concomitant]
     Dosage: 5 MG IN THE MORNING AND 2.5 MG IN THE EVENING
  9. NAMENDA [Concomitant]
  10. TYLENOL [Concomitant]
  11. PRILOSEC [Concomitant]
  12. POTASSIUM CHLORIDE [Concomitant]
  13. MAGNESIUM [Concomitant]
  14. PRAVACHOL [Concomitant]

REACTIONS (2)
  - CONVULSION [None]
  - DRUG INTERACTION [None]
